FAERS Safety Report 21042405 (Version 2)
Quarter: 2022Q3

REPORT INFORMATION
  Report Type: Spontaneous
  Country: IN (occurrence: IN)
  Receive Date: 20220705
  Receipt Date: 20220908
  Transmission Date: 20221026
  Serious: Yes (Other)
  Sender: FDA-Public Use
  Company Number: IN-NOVARTISPH-NVSC2022IN148111

PATIENT

DRUGS (5)
  1. OCTREOTIDE [Suspect]
     Active Substance: OCTREOTIDE
     Indication: Foetal exposure during pregnancy
     Dosage: MATERNAL DOSE: 50 UG, TID (SHORT ACTING)
     Route: 064
  2. OCTREOTIDE [Suspect]
     Active Substance: OCTREOTIDE
     Dosage: MATERNAL DOSE: NIGHT TIME DOSE INCREASED TO 150 UG
     Route: 064
  3. OCTREOTIDE [Suspect]
     Active Substance: OCTREOTIDE
     Dosage: MATERNAL DOSE: 20 UG (LONG ACTING RELEASE)
     Route: 064
  4. CINACALCET [Suspect]
     Active Substance: CINACALCET
     Indication: Foetal exposure during pregnancy
     Dosage: MATERNAL DOSE: 30 MG, QD
     Route: 064
  5. CINACALCET [Suspect]
     Active Substance: CINACALCET
     Dosage: MATERNAL DOSE: 30 MG, BID
     Route: 064

REACTIONS (2)
  - Hypoglycaemia neonatal [Recovered/Resolved]
  - Foetal exposure during pregnancy [Unknown]
